FAERS Safety Report 18895766 (Version 1)
Quarter: 2021Q1

REPORT INFORMATION
  Report Type: Spontaneous
  Country: IT (occurrence: IT)
  Receive Date: 20210216
  Receipt Date: 20210216
  Transmission Date: 20210420
  Serious: Yes (Hospitalization, Other)
  Sender: FDA-Public Use
  Company Number: IT-AUROBINDO-AUR-APL-2021-005905

PATIENT
  Age: 58 Year
  Sex: Female

DRUGS (4)
  1. QUETIAPINE FILM?COATED TABLET [Suspect]
     Active Substance: QUETIAPINE
     Indication: DEPRESSION
     Dosage: 1 DOSAGE FORM,TOTAL
     Route: 048
     Dates: start: 20190613
  2. FLUOXETINE [Concomitant]
     Active Substance: FLUOXETINE HYDROCHLORIDE
     Indication: DEPRESSION
     Dosage: 1 DOSAGE FORM, ONCE A DAY
     Route: 048
  3. TAVOR (LORAZEPAM) [Suspect]
     Active Substance: LORAZEPAM
     Indication: DEPRESSION
     Dosage: 1 DOSAGE FORM,TOTAL
     Route: 048
     Dates: start: 20190613
  4. AMISULPRIDE [Concomitant]
     Active Substance: AMISULPRIDE
     Indication: DEPRESSION
     Dosage: 1 DOSAGE FORM, ONCE A DAY
     Route: 048

REACTIONS (5)
  - Drug abuse [Recovering/Resolving]
  - Hypoxia [Recovering/Resolving]
  - Loss of consciousness [Recovering/Resolving]
  - Sopor [Recovering/Resolving]
  - Miosis [Recovering/Resolving]

NARRATIVE: CASE EVENT DATE: 20190613
